FAERS Safety Report 9507880 (Version 1)
Quarter: 2013Q1

REPORT INFORMATION
  Report Type: Spontaneous
  Country: US (occurrence: None)
  Receive Date: 20130305
  Receipt Date: 20130305
  Transmission Date: 20140127
  Serious: No
  Sender: FDA-Public Use
  Company Number: 163-21880-12030539

PATIENT
  Age: 77 Year
  Sex: Female

DRUGS (6)
  1. REVLIMID (LENALIDOMIDE) (CAPSULES) [Suspect]
     Indication: PLASMA CELL MYELOMA
     Dosage: 25MG, DAILY X 21D/20D, PO
     Route: 048
     Dates: start: 201009, end: 20120214
  2. DEXAMETHASONE (DEXAMETHASONE) [Concomitant]
  3. WARFARIN (WARFARIN) [Concomitant]
  4. SIMVASTATIN (SIMVASTATIN) [Concomitant]
  5. AMLODIPINE (AMLODIPINE) [Concomitant]
  6. LEVOTHYROXINE (LEVOTHYROXINE) [Concomitant]

REACTIONS (1)
  - Urinary tract infection [None]
